FAERS Safety Report 9523904 (Version 2)
Quarter: 2013Q3

REPORT INFORMATION
  Report Type: Report from Study
  Country: GB (occurrence: GB)
  Receive Date: 20130916
  Receipt Date: 20130923
  Transmission Date: 20140515
  Serious: Yes (Hospitalization)
  Sender: FDA-Public Use
  Company Number: GB-AMGEN-GBRCT2013063752

PATIENT
  Age: 33 Year
  Sex: Female

DRUGS (2)
  1. ETANERCEPT [Suspect]
     Indication: RHEUMATOID ARTHRITIS
     Dosage: 25 MG, 2X/WEEK
     Route: 065
     Dates: start: 20040626
  2. AZATHIOPRINE [Concomitant]
     Dosage: UNK

REACTIONS (3)
  - Jaundice [Unknown]
  - Liver function test abnormal [Unknown]
  - Pruritus [Unknown]
